FAERS Safety Report 5565888-X (Version None)
Quarter: 2007Q4

REPORT INFORMATION
  Report Type: 
  Country: None (occurrence: None)
  Receive Date: 20071213
  Receipt Date: 20071205
  Transmission Date: 20080405
  Serious: Yes (Hospitalization)
  Sender: FDA-Public Use
  Company Number: 2007SP024398

PATIENT
  Age: 56 Year
  Sex: Female

DRUGS (4)
  1. REBETOL [Suspect]
     Indication: HEPATITIS C
     Dosage: PO
     Route: 048
     Dates: start: 20070319, end: 20070531
  2. PEGASYS [Suspect]
     Indication: HEPATITIS C
     Dosage: SC
     Route: 058
     Dates: start: 20070319, end: 20070531
  3. MANTADIX [Concomitant]
  4. ZYLORIC [Concomitant]

REACTIONS (4)
  - ANAEMIA [None]
  - BLOOD URIC ACID INCREASED [None]
  - EPISTAXIS [None]
  - THROMBOCYTOPENIA [None]
